FAERS Safety Report 25822443 (Version 1)
Quarter: 2025Q3

REPORT INFORMATION
  Report Type: Spontaneous
  Country: US (occurrence: US)
  Receive Date: 20250919
  Receipt Date: 20250919
  Transmission Date: 20251021
  Serious: No
  Sender: TARO
  Company Number: US-TARO PHARMACEUTICALS USA INC.-2025TAR00869

PATIENT

DRUGS (4)
  1. LORATADINE [Suspect]
     Active Substance: LORATADINE
     Indication: Rhinorrhoea
     Dosage: 120 ML, OD, 2 TSP
     Route: 048
     Dates: start: 20250226
  2. LORATADINE [Suspect]
     Active Substance: LORATADINE
     Indication: Hypersensitivity
  3. LORATADINE [Suspect]
     Active Substance: LORATADINE
     Indication: Nasal pruritus
  4. LORATADINE [Suspect]
     Active Substance: LORATADINE
     Indication: Throat irritation

REACTIONS (1)
  - Wrong dose [Unknown]

NARRATIVE: CASE EVENT DATE: 20250226
